FAERS Safety Report 12592156 (Version 2)
Quarter: 2016Q3

REPORT INFORMATION
  Report Type: Spontaneous
  Country: US (occurrence: US)
  Receive Date: 20160726
  Receipt Date: 20160825
  Transmission Date: 20161109
  Serious: No
  Sender: FDA-Public Use
  Company Number: US-BAYER-2016-139321

PATIENT
  Sex: Female

DRUGS (3)
  1. BAYER GENUINE ASPIRIN [Suspect]
     Active Substance: ASPIRIN
     Indication: ARTHRITIS
  2. ALEVE [Suspect]
     Active Substance: NAPROXEN SODIUM
     Indication: MIGRAINE
     Dosage: UNK
     Route: 048
  3. BAYER GENUINE ASPIRIN [Suspect]
     Active Substance: ASPIRIN
     Indication: MIGRAINE
     Dosage: UNK
     Route: 048

REACTIONS (4)
  - Product use issue [None]
  - Drug ineffective [None]
  - Drug ineffective for unapproved indication [None]
  - Dyspepsia [None]
